FAERS Safety Report 5899854-1 (Version None)
Quarter: 2008Q3

REPORT INFORMATION
  Report Type: 
  Country: None (occurrence: None)
  Receive Date: 20080926
  Receipt Date: 20080722
  Transmission Date: 20090109
  Serious: No
  Sender: FDA-Public Use
  Company Number: US-BAYER-200829767NA

PATIENT
  Age: 28 Year
  Sex: Female
  Weight: 79 kg

DRUGS (1)
  1. MIRENA [Suspect]
     Indication: CONTRACEPTION
     Route: 015
     Dates: start: 20080609, end: 20080623

REACTIONS (7)
  - BACK PAIN [None]
  - GENITAL HAEMORRHAGE [None]
  - INFECTION [None]
  - NAUSEA [None]
  - PROCEDURAL PAIN [None]
  - PYREXIA [None]
  - URINARY TRACT INFECTION [None]
